FAERS Safety Report 4695782-8 (Version None)
Quarter: 2005Q2

REPORT INFORMATION
  Report Type: 
  Country: None (occurrence: None)
  Receive Date: 20050621
  Receipt Date: 20050606
  Transmission Date: 20051028
  Serious: Yes (Other)
  Sender: FDA-Public Use
  Company Number: FR-JNJFOC-20050604160

PATIENT
  Sex: Male

DRUGS (4)
  1. IXPRIM [Suspect]
     Route: 049
  2. DAFALGAN CODEINE [Concomitant]
     Route: 065
  3. DAFALGAN CODEINE [Concomitant]
     Route: 065
  4. NSAID'S [Concomitant]
     Route: 065

REACTIONS (6)
  - ABASIA [None]
  - AMYOTROPHY [None]
  - BRAIN SCAN ABNORMAL [None]
  - DISORIENTATION [None]
  - HALLUCINATION [None]
  - MOTOR DYSFUNCTION [None]
